FAERS Safety Report 6548404-5 (Version None)
Quarter: 2010Q1

REPORT INFORMATION
  Report Type: 
  Country: None (occurrence: None)
  Receive Date: 20100124
  Receipt Date: 20090622
  Transmission Date: 20100710
  Serious: No
  Sender: FDA-Public Use
  Company Number: US-ALLERGAN-0908412US

PATIENT
  Age: 76 Year
  Sex: Female

DRUGS (4)
  1. RESTASIS [Suspect]
     Indication: EYE INFLAMMATION
     Dosage: 1 GTT, BID
     Route: 047
     Dates: start: 20090601
  2. RESTASIS [Suspect]
  3. RESTASIS [Suspect]
  4. RESTASIS [Suspect]

REACTIONS (3)
  - DRUG ADMINISTRATION ERROR [None]
  - EYE PAIN [None]
  - SUPERFICIAL INJURY OF EYE [None]
